FAERS Safety Report 7591222-X (Version None)
Quarter: 2011Q3

REPORT INFORMATION
  Report Type: 
  Country: None (occurrence: None)
  Receive Date: 20110706
  Receipt Date: 20110623
  Transmission Date: 20111222
  Serious: Yes (Hospitalization)
  Sender: FDA-Public Use
  Company Number: FR-BIOGENIDEC-2011BI023444

PATIENT
  Age: 40 Year
  Sex: Male

DRUGS (3)
  1. TYSABRI [Suspect]
     Indication: MULTIPLE SCLEROSIS
     Route: 042
     Dates: start: 20101101, end: 20110501
  2. ANTIDEPRESSIVE [Concomitant]
     Indication: DEPRESSIVE SYMPTOM
     Dates: start: 20110301
  3. ANTIHYPERTENSIVE (NOS) [Concomitant]
     Indication: HYPERTENSION

REACTIONS (1)
  - CENTRAL NERVOUS SYSTEM LYMPHOMA [None]
